FAERS Safety Report 10886383 (Version 4)
Quarter: 2015Q4

REPORT INFORMATION
  Report Type: Report from Study
  Country: US (occurrence: US)
  Receive Date: 20150304
  Receipt Date: 20151105
  Transmission Date: 20160304
  Serious: Yes (Other)
  Sender: FDA-Public Use
  Company Number: US-SA-2014SA025189

PATIENT
  Age: 58 Year
  Sex: Female
  Weight: 83.91 kg

DRUGS (14)
  1. COPAXONE [Concomitant]
     Active Substance: GLATIRAMER ACETATE
  2. PROVIGIL [Concomitant]
     Active Substance: MODAFINIL
     Indication: FATIGUE
     Dates: start: 2000
  3. ARICEPT [Concomitant]
     Active Substance: DONEPEZIL HYDROCHLORIDE
     Indication: DISTURBANCE IN ATTENTION
     Dates: start: 2012
  4. AUBAGIO [Suspect]
     Active Substance: TERIFLUNOMIDE
     Indication: MULTIPLE SCLEROSIS
     Route: 048
     Dates: start: 201504, end: 20150515
  5. NEXIUM [Concomitant]
     Active Substance: ESOMEPRAZOLE MAGNESIUM
     Indication: HIATUS HERNIA
     Dates: start: 1989
  6. AUBAGIO [Suspect]
     Active Substance: TERIFLUNOMIDE
     Indication: MULTIPLE SCLEROSIS
     Route: 048
     Dates: end: 201507
  7. COPAXONE [Concomitant]
     Active Substance: GLATIRAMER ACETATE
     Dates: start: 201001, end: 201101
  8. AUBAGIO [Suspect]
     Active Substance: TERIFLUNOMIDE
     Indication: MULTIPLE SCLEROSIS
     Route: 048
     Dates: start: 20140221
  9. BACLOFEN. [Concomitant]
     Active Substance: BACLOFEN
     Indication: MUSCLE SPASMS
     Dates: start: 2010
  10. TOVIAZ [Concomitant]
     Active Substance: FESOTERODINE FUMARATE
     Indication: BLADDER DISORDER
     Dates: start: 2015
  11. NORTRIPTYLINE [Concomitant]
     Active Substance: NORTRIPTYLINE
     Indication: HEADACHE
     Dates: start: 2010
  12. AMPYRA [Concomitant]
     Active Substance: DALFAMPRIDINE
     Indication: GAIT DISTURBANCE
     Dates: start: 2011
  13. CYMBALTA [Concomitant]
     Active Substance: DULOXETINE HYDROCHLORIDE
     Indication: DEPRESSION
     Dates: start: 1995
  14. CLONAZEPAM. [Concomitant]
     Active Substance: CLONAZEPAM
     Indication: MUSCLE SPASMS
     Dates: start: 1995

REACTIONS (24)
  - Pelvic prolapse [Unknown]
  - Chills [Unknown]
  - Nail disorder [Unknown]
  - Nail disorder [Recovering/Resolving]
  - Alopecia [Recovered/Resolved]
  - Blister [Recovered/Resolved]
  - Fatigue [Unknown]
  - Migraine [Recovering/Resolving]
  - Multiple sclerosis relapse [Unknown]
  - Onychomadesis [Recovering/Resolving]
  - Muscle spasms [Unknown]
  - Asthenia [Unknown]
  - Infection [Unknown]
  - Aphonia [Unknown]
  - Dysphonia [Unknown]
  - Hair texture abnormal [Recovering/Resolving]
  - Skin discolouration [Unknown]
  - Sinusitis [Not Recovered/Not Resolved]
  - Hypoaesthesia [Unknown]
  - Dyspnoea [Recovering/Resolving]
  - Headache [Unknown]
  - Blood pressure increased [Recovering/Resolving]
  - Nasopharyngitis [Unknown]
  - Malaise [Unknown]

NARRATIVE: CASE EVENT DATE: 201409
